FAERS Safety Report 16103407 (Version 4)
Quarter: 2019Q2

REPORT INFORMATION
  Report Type: Report from Study
  Country: None (occurrence: US)
  Receive Date: 20190322
  Receipt Date: 20190619
  Transmission Date: 20190711
  Serious: Yes (Hospitalization, Other)
  Sender: FDA-Public Use
  Company Number: US-ABBVIE-19K-163-2652086-00

PATIENT
  Age: 75 Year
  Sex: Male

DRUGS (1)
  1. HUMIRA [Suspect]
     Active Substance: ADALIMUMAB
     Indication: RHEUMATOID ARTHRITIS
     Route: 058

REACTIONS (17)
  - Pleural effusion [Recovering/Resolving]
  - Pain [Unknown]
  - Temperature intolerance [Unknown]
  - Weight increased [Unknown]
  - Pulmonary oedema [Unknown]
  - Pneumonia [Unknown]
  - Skin disorder [Unknown]
  - Weight decreased [Unknown]
  - Oxygen consumption decreased [Unknown]
  - Inflammation [Unknown]
  - Hernia [Unknown]
  - Productive cough [Recovering/Resolving]
  - Cataract [Unknown]
  - Musculoskeletal disorder [Unknown]
  - Arthropathy [Unknown]
  - Mobility decreased [Unknown]
  - Extraocular muscle paresis [Unknown]

NARRATIVE: CASE EVENT DATE: 2018
